FAERS Safety Report 23933072 (Version 6)
Quarter: 2024Q3

REPORT INFORMATION
  Report Type: Report from Study
  Country: DE (occurrence: DE)
  Receive Date: 20240603
  Receipt Date: 20240904
  Transmission Date: 20241016
  Serious: Yes (Other)
  Sender: UCB
  Company Number: DE-UCBSA-2024018140

PATIENT
  Sex: Female
  Weight: 73 kg

DRUGS (11)
  1. BIMEKIZUMAB [Suspect]
     Active Substance: BIMEKIZUMAB
     Indication: Psoriatic arthropathy
     Dosage: 160 MILLIGRAM, EV 4 WEEKS
     Route: 058
     Dates: start: 20240306, end: 20240403
  2. VERAPAMIL [Concomitant]
     Active Substance: VERAPAMIL HYDROCHLORIDE
     Indication: Arrhythmia
     Dosage: 120 MILLIGRAM, 2X/DAY (BID)
     Route: 048
     Dates: start: 20160105
  3. PREDNISOLONE [Concomitant]
     Active Substance: PREDNISOLONE
     Indication: Hypersensitivity
     Dosage: UNK, ONCE DAILY (QD)
     Dates: start: 20120716
  4. PREDNISOLONE [Concomitant]
     Active Substance: PREDNISOLONE
     Indication: Injection site erythema
     Dosage: 20 MILLIGRAM, ONCE DAILY (QD)
     Dates: start: 20240411, end: 20240418
  5. PREDNISOLONE [Concomitant]
     Active Substance: PREDNISOLONE
     Indication: Pruritus
     Dosage: 15 MILLIGRAM, ONCE DAILY (QD)
     Dates: start: 20240419, end: 20240426
  6. PREDNISOLONE [Concomitant]
     Active Substance: PREDNISOLONE
     Indication: Psoriatic arthropathy
     Dosage: 12.5 MILLIGRAM, ONCE DAILY (QD)
     Dates: start: 20240427, end: 20240504
  7. PREDNISOLONE [Concomitant]
     Active Substance: PREDNISOLONE
     Dosage: 10 MILLIGRAM, ONCE DAILY (QD)
     Dates: start: 20240504, end: 20240511
  8. PREDNISOLONE [Concomitant]
     Active Substance: PREDNISOLONE
     Dosage: 7.5 MILLIGRAM, ONCE DAILY (QD)
     Dates: start: 20240512, end: 20240519
  9. PREDNISOLONE [Concomitant]
     Active Substance: PREDNISOLONE
     Dosage: 5 MILLIGRAM, ONCE DAILY (QD)
     Dates: start: 20240513
  10. GABAPENTIN [Concomitant]
     Active Substance: GABAPENTIN
     Indication: Polyneuropathy
     Dosage: 1 DOSAGE FORM, 2X/DAY (BID)
     Route: 048
     Dates: start: 20230301
  11. GABAPENTIN [Concomitant]
     Active Substance: GABAPENTIN
     Dosage: UNK, 2X/DAY (BID)
     Dates: start: 202401

REACTIONS (4)
  - Oesophageal candidiasis [Recovered/Resolved]
  - Pruritus [Recovered/Resolved]
  - Injection site erythema [Recovered/Resolved]
  - Hypersensitivity [Recovered/Resolved]

NARRATIVE: CASE EVENT DATE: 20240101
